FAERS Safety Report 4612135-9 (Version None)
Quarter: 2005Q2

REPORT INFORMATION
  Report Type: 
  Country: None (occurrence: None)
  Receive Date: 20050308
  Receipt Date: 20041129
  Transmission Date: 20051028
  Serious: Yes (Other)
  Sender: FDA-Public Use
  Company Number: 2004UW24337

PATIENT
  Age: 65 Year
  Sex: Female
  Weight: 68.038 kg

DRUGS (4)
  1. CRESTOR [Suspect]
     Indication: HYPERCHOLESTEROLAEMIA
     Dosage: 0 MG PO
     Route: 048
     Dates: start: 20031101, end: 20041101
  2. NORVASC [Concomitant]
  3. COREG [Concomitant]
  4. DIURETICS [Concomitant]

REACTIONS (1)
  - KIDNEY INFECTION [None]
